FAERS Safety Report 9239744 (Version 1)
Quarter: 2013Q2

REPORT INFORMATION
  Report Type: Spontaneous
  Country: US (occurrence: US)
  Receive Date: 20130418
  Receipt Date: 20130418
  Transmission Date: 20140414
  Serious: No
  Sender: FDA-Public Use
  Company Number: US-PFIZER INC-2013119572

PATIENT
  Age: 92 Year
  Sex: Female
  Weight: 50.79 kg

DRUGS (2)
  1. ADVIL PM [Suspect]
     Indication: SLEEP DISORDER
     Dosage: 2 DF, ONCE A DAY
     Dates: start: 20130413, end: 20130414
  2. METOPROLOL [Concomitant]
     Indication: CARDIAC DISORDER
     Dosage: UNK

REACTIONS (2)
  - Confusional state [Unknown]
  - Depersonalisation [Unknown]
